FAERS Safety Report 8238654-4 (Version None)
Quarter: 2012Q1

REPORT INFORMATION
  Report Type: 
  Country: None (occurrence: None)
  Receive Date: 20120327
  Receipt Date: 20120305
  Transmission Date: 20120608
  Serious: No
  Sender: FDA-Public Use
  Company Number: US-ROXANE LABORATORIES, INC.-2012-RO-00794RO

PATIENT
  Sex: Male

DRUGS (2)
  1. MORPHINE [Concomitant]
  2. METHADONE HCL [Suspect]
     Indication: PAIN
     Route: 048
     Dates: start: 20120118

REACTIONS (1)
  - DRUG INEFFECTIVE [None]
